FAERS Safety Report 19785228 (Version 2)
Quarter: 2021Q4

REPORT INFORMATION
  Report Type: Spontaneous
  Country: US (occurrence: None)
  Receive Date: 20210903
  Receipt Date: 20211112
  Transmission Date: 20220303
  Serious: No
  Sender: FDA-Public Use
  Company Number: US-EISAI MEDICAL RESEARCH-EC-2021-098421

PATIENT
  Age: 68 Year
  Sex: Female

DRUGS (3)
  1. DONEPEZIL [Suspect]
     Active Substance: DONEPEZIL
     Indication: Vascular dementia
     Route: 048
  2. BUPROPION [Suspect]
     Active Substance: BUPROPION
     Indication: Depression
     Route: 065
  3. BUPROPION [Suspect]
     Active Substance: BUPROPION
     Route: 065

REACTIONS (1)
  - Sexually inappropriate behaviour [Recovered/Resolved]
